FAERS Safety Report 25096812 (Version 2)
Quarter: 2025Q2

REPORT INFORMATION
  Report Type: Report from Study
  Country: JP (occurrence: JP)
  Receive Date: 20250319
  Receipt Date: 20250424
  Transmission Date: 20250716
  Serious: Yes (Other)
  Sender: ALNYLAM PHARMACEUTICALS
  Company Number: JP-ALNYLAM PHARMACEUTICALS, INC.-ALN-2025-001789

PATIENT

DRUGS (13)
  1. ONPATTRO [Suspect]
     Active Substance: PATISIRAN SODIUM
     Indication: Hereditary neuropathic amyloidosis
     Dosage: 14.4 MILLIGRAM, Q3W
     Route: 041
     Dates: start: 20200110, end: 20210203
  2. ONPATTRO [Suspect]
     Active Substance: PATISIRAN SODIUM
     Dosage: 14.9 MILLIGRAM, Q3W
     Route: 041
     Dates: start: 20210224, end: 20220202
  3. ONPATTRO [Suspect]
     Active Substance: PATISIRAN SODIUM
     Dosage: 15 MILLIGRAM, Q3W
     Route: 041
     Dates: start: 20220302, end: 20221205
  4. GASTER [Concomitant]
     Active Substance: FAMOTIDINE
     Indication: Premedication
     Dosage: 20 MILLIGRAM, QD
     Route: 065
     Dates: start: 20200110, end: 20221205
  5. POLARAMINE [Concomitant]
     Active Substance: DEXCHLORPHENIRAMINE MALEATE
     Indication: Premedication
     Dosage: 5 MILLIGRAM, QD
     Route: 065
     Dates: start: 20200110, end: 20221205
  6. DEXAMETHASONE SODIUM PHOSPHATE [Concomitant]
     Active Substance: DEXAMETHASONE SODIUM PHOSPHATE
     Indication: Premedication
     Dosage: 10 MILLIGRAM, QD
     Route: 065
     Dates: start: 20200110, end: 20221205
  7. ACETAMINOPHEN [Concomitant]
     Active Substance: ACETAMINOPHEN
     Indication: Premedication
     Dosage: 500 MILLIGRAM, QD
     Route: 065
     Dates: start: 20200110, end: 20210428
  8. VITAMINS [Concomitant]
     Active Substance: VITAMINS
     Indication: Prophylaxis
     Dosage: 1 GRAM, QD
     Route: 048
     Dates: start: 20200110
  9. SODIUM FERROUS CITRATE [Concomitant]
     Active Substance: SODIUM FERROUS CITRATE
     Indication: Iron deficiency anaemia
     Dosage: 50 MILLIGRAM, QD
     Route: 048
     Dates: end: 20210907
  10. DROXIDOPA [Concomitant]
     Active Substance: DROXIDOPA
     Indication: Hereditary neuropathic amyloidosis
     Dosage: 100 MILLIGRAM, TID
     Route: 048
  11. MIROGABALIN BESYLATE [Concomitant]
     Active Substance: MIROGABALIN BESYLATE
     Indication: Hereditary neuropathic amyloidosis
     Dosage: 5 MILLIGRAM, BID
     Route: 048
  12. CALONAL [Concomitant]
     Active Substance: ACETAMINOPHEN
     Indication: Premedication
     Dosage: 0.5 GRAM, QD
     Route: 048
     Dates: start: 20210707, end: 20221205
  13. COLESTILAN CHLORIDE [Concomitant]
     Active Substance: COLESTILAN CHLORIDE
     Indication: Hereditary neuropathic amyloidosis
     Dosage: 3 DOSAGE FORM, BID
     Route: 048
     Dates: start: 20220302, end: 20220330

REACTIONS (1)
  - Diarrhoea [Unknown]
